FAERS Safety Report 4927730-7 (Version None)
Quarter: 2006Q1

REPORT INFORMATION
  Report Type: 
  Country: None (occurrence: None)
  Receive Date: 20060228
  Receipt Date: 20060217
  Transmission Date: 20060701
  Serious: Yes (Other)
  Sender: FDA-Public Use
  Company Number: US-JNJFOC-20060205208

PATIENT
  Sex: Female
  Weight: 68.04 kg

DRUGS (2)
  1. DURAGESIC-100 [Suspect]
     Route: 062
  2. CLONIDINE [Concomitant]
     Route: 065

REACTIONS (4)
  - DYSPNOEA [None]
  - FALL [None]
  - LOSS OF CONSCIOUSNESS [None]
  - PERSONALITY CHANGE [None]
